FAERS Safety Report 5933222-9 (Version None)
Quarter: 2008Q4

REPORT INFORMATION
  Report Type: 
  Country: None (occurrence: None)
  Receive Date: 20081028
  Receipt Date: 20081016
  Transmission Date: 20090506
  Serious: Yes (Other)
  Sender: FDA-Public Use
  Company Number: US-PFIZER INC-2008016710

PATIENT
  Sex: Female
  Weight: 139.1 kg

DRUGS (27)
  1. CHANTIX [Suspect]
     Indication: SMOKING CESSATION THERAPY
     Route: 048
     Dates: start: 20080203
  2. INSULIN DETEMIR [Interacting]
     Indication: DIABETES MELLITUS
  3. SKELAXIN [Concomitant]
  4. GABAPENTIN [Concomitant]
  5. ADVAIR DISKUS 100/50 [Concomitant]
  6. MONTELUKAST SODIUM [Concomitant]
  7. ZYRTEC [Concomitant]
  8. KLONOPIN [Concomitant]
  9. CYMBALTA [Concomitant]
  10. BENICAR HCT [Concomitant]
  11. CRESTOR [Concomitant]
  12. ZETIA [Concomitant]
  13. MOBIC [Concomitant]
  14. ASPIRIN [Concomitant]
  15. IBUPROFEN TABLETS [Concomitant]
  16. TYLENOL [Concomitant]
  17. BYETTA [Concomitant]
  18. GLIMEPIRIDE [Concomitant]
  19. TRAZODONE HCL [Concomitant]
  20. DETROL LA [Concomitant]
  21. DIFLUCAN [Concomitant]
  22. LORTAB [Concomitant]
  23. ACIDOPHILUS [Concomitant]
  24. OS-CAL D [Concomitant]
  25. CRANBERRY [Concomitant]
  26. GENERAL NUTRIENTS [Concomitant]
  27. ASCORBIC ACID [Concomitant]

REACTIONS (17)
  - BLOOD GLUCOSE INCREASED [None]
  - CARDIAC FAILURE CONGESTIVE [None]
  - CARDIOMEGALY [None]
  - CONFUSIONAL STATE [None]
  - DIZZINESS [None]
  - DRUG INEFFECTIVE [None]
  - DRUG INTERACTION [None]
  - DRUG WITHDRAWAL SYNDROME [None]
  - DYSPHAGIA [None]
  - FATIGUE [None]
  - HYPERGLYCAEMIA [None]
  - HYPOGLYCAEMIA [None]
  - IRRITABILITY [None]
  - LYMPHADENOPATHY [None]
  - MYOCARDIAL INFARCTION [None]
  - STRESS [None]
  - TINNITUS [None]
